FAERS Safety Report 9150045 (Version 1)
Quarter: 2013Q1

REPORT INFORMATION
  Report Type: Spontaneous
  Country: US (occurrence: US)
  Receive Date: 20130308
  Receipt Date: 20130308
  Transmission Date: 20140127
  Serious: Yes (Hospitalization)
  Sender: FDA-Public Use
  Company Number: US-BAYER-2013-028073

PATIENT
  Age: 34 Year
  Sex: Female

DRUGS (8)
  1. YAZ [Suspect]
  2. CLARITIN [Concomitant]
  3. TYLENOL [Concomitant]
  4. AZITHROMYCIN [Concomitant]
     Dosage: 250 MG, UNK
     Dates: start: 20100310
  5. FLUTICASONE [Concomitant]
     Dosage: UNK
     Route: 045
     Dates: start: 20100310
  6. R-TANNA [CHLORPHENAMINE TANNATE,PHENYLEPHRINE TANNATE] [Concomitant]
     Dosage: UNK
     Dates: start: 20100215
  7. R-TANNA [CHLORPHENAMINE TANNATE,PHENYLEPHRINE TANNATE] [Concomitant]
     Dosage: UNK
     Dates: start: 20100324
  8. BUTALBITAL/CAFFEINE/PARACETAMOL/ [Concomitant]
     Dosage: UNK
     Dates: start: 20100310

REACTIONS (3)
  - Pelvic venous thrombosis [None]
  - Deep vein thrombosis [None]
  - Thrombophlebitis superficial [None]
